FAERS Safety Report 16175668 (Version 1)
Quarter: 2019Q2

REPORT INFORMATION
  Report Type: Spontaneous
  Country: US (occurrence: US)
  Receive Date: 20190409
  Receipt Date: 20190409
  Transmission Date: 20190711
  Serious: No
  Sender: FDA-Public Use
  Company Number: US-JNJFOC-20190320047

PATIENT
  Age: 76 Year
  Sex: Female
  Weight: 53.07 kg

DRUGS (2)
  1. WOMENS ROGAINE [Suspect]
     Active Substance: MINOXIDIL
     Route: 061
  2. WOMENS ROGAINE [Suspect]
     Active Substance: MINOXIDIL
     Indication: ALOPECIA
     Dosage: THE RECOMMENDED AMOUNT TWICE DAILY.
     Route: 061

REACTIONS (1)
  - Product residue present [Not Recovered/Not Resolved]
